FAERS Safety Report 9018543 (Version 2)
Quarter: 2013Q2

REPORT INFORMATION
  Report Type: Spontaneous
  Country: US (occurrence: US)
  Receive Date: 20130118
  Receipt Date: 20130416
  Transmission Date: 20140414
  Serious: No
  Sender: FDA-Public Use
  Company Number: US-PFIZER INC-2013019046

PATIENT
  Age: 45 Year
  Sex: Male
  Weight: 75 kg

DRUGS (3)
  1. ARTHROTEC [Suspect]
     Indication: ARTHRITIS
     Dosage: 200 MCG/75 MG
     Route: 048
  2. ARTHROTEC [Suspect]
     Dosage: 200 MCG/75 MG, EVERY 3 DAYS
     Route: 048
  3. ARTHROTEC [Suspect]
     Dosage: 1 DF, 2X/DAY

REACTIONS (2)
  - Erectile dysfunction [Unknown]
  - Inappropriate schedule of drug administration [Unknown]
